FAERS Safety Report 7564736-6 (Version None)
Quarter: 2011Q2

REPORT INFORMATION
  Report Type: 
  Country: None (occurrence: None)
  Receive Date: 20110622
  Receipt Date: 20101124
  Transmission Date: 20111010
  Serious: Yes (Other)
  Sender: FDA-Public Use
  Company Number: US-MYLANLABS-2010S1018610

PATIENT
  Age: 51 Year
  Sex: Male

DRUGS (15)
  1. GABAPENTIN [Concomitant]
  2. GEMFIBROZIL [Concomitant]
  3. LAMOTRIGINE [Concomitant]
  4. OMEPRAZOLE [Concomitant]
  5. ARICEPT [Concomitant]
  6. HUMALOG [Concomitant]
  7. CARVEDILOL [Concomitant]
  8. RISPERIDONE [Concomitant]
  9. OXCARBAZEPINE [Concomitant]
  10. CLOZAPINE [Suspect]
     Route: 048
     Dates: start: 20081006, end: 20101104
  11. SERTRALINE HYDROCHLORIDE [Concomitant]
  12. POTASSIUM CHLORIDE [Concomitant]
  13. LANTUS [Concomitant]
  14. FOLATE [Concomitant]
  15. TORSEMIDE [Concomitant]

REACTIONS (1)
  - GRANULOCYTOPENIA [None]
